FAERS Safety Report 5852353-5 (Version None)
Quarter: 2008Q3

REPORT INFORMATION
  Report Type: 
  Country: None (occurrence: None)
  Receive Date: 20080819
  Receipt Date: 20080804
  Transmission Date: 20090109
  Serious: Yes (Death, Hospitalization)
  Sender: FDA-Public Use
  Company Number: KADN20080309

PATIENT
  Age: 53 Year
  Sex: Female

DRUGS (4)
  1. MORPHINE [Suspect]
     Dosage: ORAL
     Route: 048
     Dates: end: 20060101
  2. HYDROCHLOROTHIAZIDE [Suspect]
     Dosage: ORAL
     Route: 048
     Dates: end: 20060101
  3. ASPIRIN,BUTALBITAL,CAFFEINE [Suspect]
     Dosage: ORAL
     Route: 048
     Dates: end: 20060101
  4. DIAZEPAM [Suspect]
     Dates: end: 20060101

REACTIONS (21)
  - ACIDOSIS [None]
  - ALANINE AMINOTRANSFERASE INCREASED [None]
  - ARTERIOSCLEROSIS [None]
  - ASCITES [None]
  - ASPARTATE AMINOTRANSFERASE INCREASED [None]
  - BLOOD CALCIUM DECREASED [None]
  - BLOOD CREATINE INCREASED [None]
  - BLOOD POTASSIUM INCREASED [None]
  - CARDIOMEGALY [None]
  - COMPLETED SUICIDE [None]
  - DIALYSIS [None]
  - GASTRIC HAEMORRHAGE [None]
  - GASTRITIS EROSIVE [None]
  - HYPOTENSION [None]
  - LETHARGY [None]
  - MULTI-ORGAN FAILURE [None]
  - MYOCARDIAL INFARCTION [None]
  - PLEURAL EFFUSION [None]
  - PULMONARY CONGESTION [None]
  - RECTAL HAEMORRHAGE [None]
  - UNRESPONSIVE TO STIMULI [None]
